FAERS Safety Report 19493742 (Version 1)
Quarter: 2021Q3

REPORT INFORMATION
  Report Type: Spontaneous
  Country: US (occurrence: US)
  Receive Date: 20210705
  Receipt Date: 20210705
  Transmission Date: 20211014
  Serious: Yes (Other)
  Sender: FDA-Public Use
  Company Number: US-GLAXOSMITHKLINE-US2021GSK145560

PATIENT
  Sex: Female

DRUGS (6)
  1. RANITIDINE CAPSULE [Suspect]
     Active Substance: RANITIDINE
     Indication: INTESTINAL ULCER
     Dosage: 150 MG
     Route: 065
     Dates: start: 201401, end: 201901
  2. RANITIDINE. [Suspect]
     Active Substance: RANITIDINE
     Indication: INTESTINAL ULCER
     Dosage: 150 MG
     Route: 065
     Dates: start: 201401, end: 201901
  3. RANITIDINE. [Suspect]
     Active Substance: RANITIDINE
     Indication: INTESTINAL ULCER
     Dosage: 150 MG
     Route: 065
     Dates: start: 201401, end: 201901
  4. ZANTAC [Suspect]
     Active Substance: RANITIDINE HYDROCHLORIDE
     Indication: INTESTINAL ULCER
     Dosage: 150 MG
     Route: 065
     Dates: start: 201401, end: 201901
  5. ZANTAC [Suspect]
     Active Substance: RANITIDINE HYDROCHLORIDE
     Indication: INTESTINAL ULCER
     Dosage: 150 MG
     Route: 065
     Dates: start: 201401, end: 201901
  6. RANITIDINE. [Suspect]
     Active Substance: RANITIDINE
     Indication: INTESTINAL ULCER
     Dosage: 150 MG
     Route: 065
     Dates: start: 201401, end: 201901

REACTIONS (1)
  - Renal cancer [Unknown]
